FAERS Safety Report 6405014-8 (Version None)
Quarter: 2009Q4

REPORT INFORMATION
  Report Type: 
  Country: None (occurrence: None)
  Receive Date: 20091019
  Receipt Date: 20091014
  Transmission Date: 20100525
  Serious: Yes (Other)
  Sender: FDA-Public Use
  Company Number: BR-PFIZER INC-2009210393

PATIENT
  Age: 92 Year

DRUGS (8)
  1. XALATAN [Suspect]
     Indication: GLAUCOMA
     Dosage: UNK
     Route: 047
  2. SPIRIVA [Concomitant]
     Dosage: UNK
  3. METFORMIN [Concomitant]
     Indication: DIABETES MELLITUS
     Dosage: UNK
  4. DOMPERIDONE [Concomitant]
  5. TRIMEBUTINE [Concomitant]
  6. APROVEL [Concomitant]
     Dosage: UNK
  7. VALERIANA OFFICINALIS [Concomitant]
     Dosage: UNK
  8. FLUIMUCIL [Concomitant]
     Dosage: UNK

REACTIONS (1)
  - PNEUMONIA [None]
